FAERS Safety Report 5834278-4 (Version None)
Quarter: 2008Q3

REPORT INFORMATION
  Report Type: 
  Country: None (occurrence: None)
  Receive Date: 20080805
  Receipt Date: 20080731
  Transmission Date: 20090109
  Serious: Yes (Death, Hospitalization, Other)
  Sender: FDA-Public Use
  Company Number: PHBS2008US05262

PATIENT
  Age: 67 Year
  Sex: Male

DRUGS (4)
  1. CYCLOSPORINE [Suspect]
     Indication: LYMPHOHISTIOCYTOSIS
  2. DEXAMETHASONE [Concomitant]
     Indication: LYMPHOHISTIOCYTOSIS
  3. IMMUNOGLOBULINS [Concomitant]
     Indication: LYMPHOHISTIOCYTOSIS
     Route: 042
  4. GANCICLOVIR [Concomitant]
     Indication: LYMPHOHISTIOCYTOSIS

REACTIONS (13)
  - BACTERAEMIA [None]
  - DIARRHOEA [None]
  - FATIGUE [None]
  - FEBRILE NEUTROPENIA [None]
  - GENERAL PHYSICAL HEALTH DETERIORATION [None]
  - HAEMOGLOBIN DECREASED [None]
  - HYPOTENSION [None]
  - HYPOXIA [None]
  - MYALGIA [None]
  - PLATELET COUNT DECREASED [None]
  - PYREXIA [None]
  - STAPHYLOCOCCAL INFECTION [None]
  - WHITE BLOOD CELL COUNT DECREASED [None]
